FAERS Safety Report 7207640-5 (Version None)
Quarter: 2011Q1

REPORT INFORMATION
  Report Type: 
  Country: None (occurrence: None)
  Receive Date: 20110103
  Receipt Date: 20101222
  Transmission Date: 20110831
  Serious: Yes (Other)
  Sender: FDA-Public Use
  Company Number: US-PFIZER INC-2010097675

PATIENT
  Sex: Female
  Weight: 87.528 kg

DRUGS (9)
  1. EFFEXOR [Suspect]
     Indication: DEPRESSION
  2. LYRICA [Suspect]
     Indication: FIBROMYALGIA
     Dosage: 150 MG IN THE MORNING, 75 MG IN THE AFTERNOON, 150 MG IN THE EVENING
     Route: 048
  3. EFFEXOR [Suspect]
     Indication: MENOPAUSE
     Dosage: 75 MG, 1X/DAY
     Dates: start: 20080101
  4. NEXIUM [Concomitant]
     Indication: GASTROOESOPHAGEAL REFLUX DISEASE
     Dosage: 40 MG, UNK
  5. PREMPRO [Concomitant]
     Indication: OSTEOARTHRITIS
     Dosage: 0.3/1.5
  6. CRESTOR [Concomitant]
     Indication: BLOOD CHOLESTEROL INCREASED
     Dosage: UNK
  7. LEVOTHYROXINE [Concomitant]
     Indication: THYROID NEOPLASM
     Dosage: 0.05 MG, UNK
     Route: 048
  8. ENALAPRIL [Concomitant]
     Indication: HYPERTENSION
     Dosage: 5 MG, UNK
  9. LIDODERM [Concomitant]
     Indication: PAIN
     Dosage: UNK

REACTIONS (6)
  - WEIGHT INCREASED [None]
  - COLONIC POLYP [None]
  - INTERVERTEBRAL DISC PROTRUSION [None]
  - GASTROINTESTINAL ULCER [None]
  - DEPRESSION [None]
  - DRUG WITHDRAWAL SYNDROME [None]
